FAERS Safety Report 5372767-X (Version None)
Quarter: 2007Q2

REPORT INFORMATION
  Report Type: 
  Country: None (occurrence: None)
  Receive Date: 20070626
  Receipt Date: 20070612
  Transmission Date: 20071010
  Serious: Yes (Hospitalization)
  Sender: FDA-Public Use
  Company Number: 220002M07FRA

PATIENT
  Age: 16 Year
  Sex: Male
  Weight: 33.7 kg

DRUGS (1)
  1. SAIZEN [Suspect]
     Indication: GROWTH HORMONE DEFICIENCY
     Dates: start: 20070401

REACTIONS (2)
  - DIABETES MELLITUS [None]
  - WEIGHT DECREASED [None]
